FAERS Safety Report 6071458-X (Version None)
Quarter: 2009Q1

REPORT INFORMATION
  Report Type: 
  Country: None (occurrence: None)
  Receive Date: 20090210
  Receipt Date: 20090203
  Transmission Date: 20090719
  Serious: Yes (Other)
  Sender: FDA-Public Use
  Company Number: US-RANBAXY-2009US-20498

PATIENT

DRUGS (2)
  1. ISOTRETINOIN [Suspect]
     Indication: ACNE
     Dosage: 40 MG, BID
     Route: 048
     Dates: start: 20080501, end: 20080901
  2. ISOTRETINOIN [Suspect]
     Dosage: 40 MG QD
     Dates: start: 20090109

REACTIONS (2)
  - JAW FRACTURE [None]
  - SURGERY [None]
